FAERS Safety Report 9771998 (Version 1)
Quarter: 2013Q4

REPORT INFORMATION
  Report Type: Spontaneous
  Country: US (occurrence: US)
  Receive Date: 20131219
  Receipt Date: 20131219
  Transmission Date: 20140711
  Serious: No
  Sender: FDA-Public Use
  Company Number: US-009507513-1312USA004907

PATIENT
  Sex: Female

DRUGS (3)
  1. JANUVIA [Suspect]
     Dosage: ONE 100MG TABLET A DAY
     Route: 048
  2. ZETIA [Concomitant]
     Dosage: UNK
     Route: 048
  3. METFORMIN [Concomitant]

REACTIONS (2)
  - Weight decreased [Unknown]
  - Decreased appetite [Unknown]
